FAERS Safety Report 19820915 (Version 1)
Quarter: 2021Q3

REPORT INFORMATION
  Report Type: Spontaneous
  Country: US (occurrence: US)
  Receive Date: 20210911
  Receipt Date: 20210911
  Transmission Date: 20211014
  Serious: Yes (Other)
  Sender: FDA-Public Use
  Company Number: None

PATIENT
  Age: 35 Year
  Sex: Male
  Weight: 74.84 kg

DRUGS (2)
  1. HUMIRA [Suspect]
     Active Substance: ADALIMUMAB
     Indication: COLITIS ULCERATIVE
     Dates: start: 20210911, end: 20210911
  2. PROAIR  HFA (ALBUTEROL SULFATE) [Concomitant]

REACTIONS (7)
  - Device malfunction [None]
  - Injection site inflammation [None]
  - Injection site pain [None]
  - Incorrect dose administered [None]
  - Product quality issue [None]
  - Injection site haemorrhage [None]
  - Device leakage [None]

NARRATIVE: CASE EVENT DATE: 20210911
